FAERS Safety Report 18591218 (Version 5)
Quarter: 2021Q3

REPORT INFORMATION
  Report Type: Spontaneous
  Country: US (occurrence: US)
  Receive Date: 20201208
  Receipt Date: 20210908
  Transmission Date: 20211014
  Serious: Yes (Other)
  Sender: FDA-Public Use
  Company Number: US-PFIZER INC-2020481456

PATIENT
  Age: 70 Year
  Sex: Female
  Weight: 54.43 kg

DRUGS (6)
  1. GEODON [Suspect]
     Active Substance: ZIPRASIDONE HYDROCHLORIDE\ZIPRASIDONE MESYLATE
     Indication: DEPRESSION
     Dosage: 80 MG, 1X/DAY
     Route: 048
     Dates: start: 2010
  2. GEODON [Suspect]
     Active Substance: ZIPRASIDONE HYDROCHLORIDE\ZIPRASIDONE MESYLATE
     Dosage: UNK
     Route: 048
     Dates: end: 202103
  3. GEODON [Suspect]
     Active Substance: ZIPRASIDONE HYDROCHLORIDE\ZIPRASIDONE MESYLATE
     Indication: BIPOLAR DISORDER
     Dosage: 40 MG, 1X/DAY
     Route: 048
  4. GEODON [Suspect]
     Active Substance: ZIPRASIDONE HYDROCHLORIDE\ZIPRASIDONE MESYLATE
     Dosage: 40 MG, 2X/DAY
     Route: 048
     Dates: start: 2010
  5. GEODON [Suspect]
     Active Substance: ZIPRASIDONE HYDROCHLORIDE\ZIPRASIDONE MESYLATE
     Dosage: 60 MG, 2X/DAY
     Route: 048
  6. GEODON [Suspect]
     Active Substance: ZIPRASIDONE HYDROCHLORIDE\ZIPRASIDONE MESYLATE
     Indication: MENOPAUSE
     Dosage: 20 MG, 1X/DAY
     Route: 048

REACTIONS (26)
  - Loss of consciousness [Unknown]
  - Gastrointestinal disorder [Unknown]
  - Tardive dyskinesia [Not Recovered/Not Resolved]
  - Vocal cord disorder [Unknown]
  - Insomnia [Unknown]
  - Night sweats [Unknown]
  - Vomiting [Unknown]
  - Brain injury [Unknown]
  - Off label use [Unknown]
  - Withdrawal syndrome [Unknown]
  - Headache [Unknown]
  - Paraesthesia [Unknown]
  - Gingival bleeding [Unknown]
  - Flatulence [Unknown]
  - Concussion [Unknown]
  - Multiple fractures [Unknown]
  - Diarrhoea [Unknown]
  - Nephropathy [Recovered/Resolved]
  - Crohn^s disease [Unknown]
  - Nausea [Recovered/Resolved]
  - Dyskinesia [Unknown]
  - Dyspnoea [Recovered/Resolved]
  - Orthostatic hypotension [Recovered/Resolved]
  - Parkinson^s disease [Recovered/Resolved]
  - Hyperhidrosis [Unknown]
  - Nightmare [Unknown]

NARRATIVE: CASE EVENT DATE: 20210430
